FAERS Safety Report 9156320 (Version 1)
Quarter: 2013Q1

REPORT INFORMATION
  Report Type: Spontaneous
  Country: US (occurrence: US)
  Receive Date: 20130312
  Receipt Date: 20130312
  Transmission Date: 20140127
  Serious: Yes (Hospitalization, Other)
  Sender: FDA-Public Use
  Company Number: US-AMGEN-USASP2013015839

PATIENT
  Age: 55 Year
  Sex: Female

DRUGS (3)
  1. ENBREL [Suspect]
     Indication: RHEUMATOID ARTHRITIS
     Dosage: 50 MG, QWK
     Dates: start: 1999
  2. METHOTREXATE [Concomitant]
     Dosage: 25MG/CC. .6CC 15 MG, QWK
  3. VIOXX [Concomitant]
     Dosage: UNK

REACTIONS (12)
  - Carcinoid tumour [Recovered/Resolved]
  - Cataract [Not Recovered/Not Resolved]
  - Cartilage atrophy [Recovered/Resolved]
  - Diverticulum [Recovered/Resolved]
  - Reflux gastritis [Not Recovered/Not Resolved]
  - Skin cancer [Recovered/Resolved]
  - Abdominal pain upper [Recovered/Resolved]
  - Drug ineffective [Recovered/Resolved]
  - Arthritis [Recovered/Resolved]
  - Fatigue [Recovered/Resolved]
  - Malaise [Recovered/Resolved]
  - Pain [Not Recovered/Not Resolved]
